APPROVED DRUG PRODUCT: GEMFIBROZIL
Active Ingredient: GEMFIBROZIL
Strength: 600MG
Dosage Form/Route: TABLET;ORAL
Application: A204189 | Product #001
Applicant: CADILA HEALTHCARE LTD
Approved: Aug 28, 2018 | RLD: No | RS: No | Type: DISCN